FAERS Safety Report 25456523 (Version 1)
Quarter: 2025Q2

REPORT INFORMATION
  Report Type: Spontaneous
  Country: CN (occurrence: CN)
  Receive Date: 20250619
  Receipt Date: 20250619
  Transmission Date: 20250717
  Serious: Yes (Life-Threatening)
  Sender: NOVARTIS
  Company Number: CN-002147023-NVSC2025CN098384

PATIENT
  Age: 58 Year
  Sex: Female
  Weight: 50 kg

DRUGS (1)
  1. SACUBITRIL\VALSARTAN [Suspect]
     Active Substance: SACUBITRIL\VALSARTAN
     Indication: Left ventricular failure
     Dosage: 100.000 MG, BID
     Route: 048
     Dates: start: 20250605, end: 20250615

REACTIONS (3)
  - Palpitations [Recovering/Resolving]
  - Chest discomfort [Recovering/Resolving]
  - Chest pain [Recovering/Resolving]

NARRATIVE: CASE EVENT DATE: 20250615
